FAERS Safety Report 4884704-2 (Version None)
Quarter: 2005Q4

REPORT INFORMATION
  Report Type: 
  Country: None (occurrence: None)
  Receive Date: 20051201
  Receipt Date: 20050902
  Transmission Date: 20060501
  Serious: No
  Sender: FDA-Public Use
  Company Number: 2005PV001732

PATIENT
  Age: 42 Year
  Sex: Female
  Weight: 87.0906 kg

DRUGS (7)
  1. BYETTA [Suspect]
     Indication: DIABETES MELLITUS NON-INSULIN-DEPENDENT
     Dosage: SEE IMAGE
     Route: 058
     Dates: start: 20050901, end: 20051003
  2. BYETTA [Suspect]
     Indication: DIABETES MELLITUS NON-INSULIN-DEPENDENT
     Dosage: SEE IMAGE
     Route: 058
     Dates: start: 20051004
  3. BP MEDS [Concomitant]
  4. RYTHMOL [Concomitant]
  5. METFORMIN HCL [Concomitant]
  6. INDERAL [Concomitant]
  7. DIAZEPAM [Concomitant]

REACTIONS (6)
  - BLOOD GLUCOSE FLUCTUATION [None]
  - DRUG EFFECT DECREASED [None]
  - INJECTION SITE BRUISING [None]
  - INJECTION SITE NODULE [None]
  - NAUSEA [None]
  - WEIGHT DECREASED [None]
